FAERS Safety Report 22821526 (Version 3)
Quarter: 2023Q4

REPORT INFORMATION
  Report Type: Spontaneous
  Country: FR (occurrence: FR)
  Receive Date: 20230814
  Receipt Date: 20231002
  Transmission Date: 20240110
  Serious: Yes (Hospitalization, Other)
  Sender: FDA-Public Use
  Company Number: None

PATIENT
  Age: 57 Year
  Sex: Female
  Weight: 53 kg

DRUGS (5)
  1. KEYTRUDA [Suspect]
     Active Substance: PEMBROLIZUMAB
     Indication: Triple negative breast cancer
     Dosage: 200 MILLIGRAM, ONCE
     Route: 042
     Dates: start: 20230711, end: 20230711
  2. CARBOPLATIN [Suspect]
     Active Substance: CARBOPLATIN
     Indication: Triple negative breast cancer
     Dosage: 155 MILLIGRAM, ONCE
     Route: 042
     Dates: start: 20230711, end: 20230711
  3. CARBOPLATIN [Suspect]
     Active Substance: CARBOPLATIN
     Dosage: 155 MILLIGRAM, ONCE
     Route: 042
     Dates: start: 20230721, end: 20230721
  4. PACLITAXEL [Suspect]
     Active Substance: PACLITAXEL
     Indication: Triple negative breast cancer
     Dosage: 123 MILLIGRAM, ONCE
     Route: 042
     Dates: start: 20230711, end: 20230711
  5. PACLITAXEL [Suspect]
     Active Substance: PACLITAXEL
     Dosage: 123 MILLIGRAM, ONCE
     Route: 042
     Dates: start: 20230721, end: 20230721

REACTIONS (2)
  - Hepatic cytolysis [Recovering/Resolving]
  - Staphylococcal bacteraemia [Recovering/Resolving]

NARRATIVE: CASE EVENT DATE: 20230713
